FAERS Safety Report 6938199-5 (Version None)
Quarter: 2010Q3

REPORT INFORMATION
  Report Type: 
  Country: None (occurrence: None)
  Receive Date: 20100824
  Receipt Date: 20100811
  Transmission Date: 20110219
  Serious: Yes (Other)
  Sender: FDA-Public Use
  Company Number: PHFR2010GB02056

PATIENT
  Sex: Female

DRUGS (1)
  1. CLOZARIL [Suspect]
     Indication: SCHIZOPHRENIA
     Dosage: UNK
     Route: 048
     Dates: start: 20080227

REACTIONS (4)
  - HAEMOGLOBIN DECREASED [None]
  - NEOPLASM MALIGNANT [None]
  - PLATELET COUNT INCREASED [None]
  - SURGERY [None]
